FAERS Safety Report 11430980 (Version 1)
Quarter: 2015Q3

REPORT INFORMATION
  Report Type: Spontaneous
  Country: US (occurrence: US)
  Receive Date: 20150828
  Receipt Date: 20150828
  Transmission Date: 20151125
  Serious: No
  Sender: FDA-Public Use
  Company Number: PHEH2014US018678

PATIENT
  Sex: Female

DRUGS (1)
  1. VIVELLE DOT [Suspect]
     Active Substance: ESTRADIOL
     Indication: PRODUCT USED FOR UNKNOWN INDICATION
     Dosage: 0.025 MG, UNK
     Route: 065

REACTIONS (5)
  - Application site pruritus [Unknown]
  - Dermatitis contact [Unknown]
  - Application site exfoliation [Unknown]
  - Application site erythema [Unknown]
  - Application site swelling [Unknown]
